FAERS Safety Report 4399713-X (Version None)
Quarter: 2004Q2

REPORT INFORMATION
  Report Type: 
  Country: None (occurrence: None)
  Receive Date: 20040608
  Receipt Date: 20040409
  Transmission Date: 20050107
  Serious: No
  Sender: FDA-Public Use
  Company Number: FROV000188

PATIENT
  Age: 31 Year
  Sex: Female

DRUGS (2)
  1. FROVA [Suspect]
     Indication: MIGRAINE
     Dosage: 5 MG; ORAL
     Route: 048
     Dates: start: 20040409
  2. BUTALBITAL, ACETAMINOPHEN, CAFFEINE [Concomitant]

REACTIONS (1)
  - MIGRAINE [None]
